FAERS Safety Report 8016698-5 (Version None)
Quarter: 2012Q1

REPORT INFORMATION
  Report Type: 
  Country: None (occurrence: None)
  Receive Date: 20120102
  Receipt Date: 20111227
  Transmission Date: 20120608
  Serious: Yes (Other)
  Sender: FDA-Public Use
  Company Number: US-BIOGENIDEC-2011BI048859

PATIENT
  Age: 47 Year
  Sex: Female

DRUGS (4)
  1. TYSABRI [Suspect]
     Route: 042
     Dates: start: 20090211, end: 20090211
  2. TYSABRI [Suspect]
     Indication: MULTIPLE SCLEROSIS
     Route: 042
     Dates: start: 20100920, end: 20101019
  3. TYSABRI [Suspect]
     Route: 042
     Dates: start: 20070409, end: 20070828
  4. TYSABRI [Suspect]
     Route: 042
     Dates: start: 20110221, end: 20110428

REACTIONS (2)
  - THYROID CANCER [None]
  - BREAST MASS [None]
